FAERS Safety Report 8916077 (Version 2)
Quarter: 2013Q1

REPORT INFORMATION
  Report Type: Report from Study
  Country: US (occurrence: US)
  Receive Date: 20121119
  Receipt Date: 20130102
  Transmission Date: 20140127
  Serious: Yes (Other)
  Sender: FDA-Public Use
  Company Number: US-ASTRAZENECA-2012SE85188

PATIENT
  Age: 53 Year
  Sex: Female
  Weight: 129.3 kg

DRUGS (4)
  1. NEXIUM [Suspect]
     Indication: GASTROOESOPHAGEAL REFLUX DISEASE
     Route: 048
     Dates: start: 1998
  2. TRIAMTERENE HCTZ [Concomitant]
     Indication: HYPERTENSION
     Dosage: 75/50 ONCE
     Route: 048
  3. TRIAMTERENE HCTZ [Concomitant]
     Indication: OEDEMA
     Dosage: 75/50 ONCE
     Route: 048
  4. TYLENOL [Concomitant]
     Indication: PAIN

REACTIONS (13)
  - Chest wall mass [Unknown]
  - Muscle spasms [Unknown]
  - Intervertebral disc protrusion [Unknown]
  - Diabetes mellitus [Unknown]
  - Weight increased [Unknown]
  - Gastrointestinal disorder [Unknown]
  - Ill-defined disorder [Unknown]
  - Hypertension [Unknown]
  - Weight decreased [Unknown]
  - Memory impairment [Unknown]
  - Neuropathy peripheral [Unknown]
  - Sleep apnoea syndrome [Unknown]
  - Arthralgia [Unknown]
